FAERS Safety Report 5474076-7 (Version None)
Quarter: 2007Q4

REPORT INFORMATION
  Report Type: 
  Country: None (occurrence: None)
  Receive Date: 20071002
  Receipt Date: 20070925
  Transmission Date: 20080405
  Serious: Yes (Hospitalization, Other)
  Sender: FDA-Public Use
  Company Number: PHNU2007DE03265

PATIENT
  Sex: Male

DRUGS (2)
  1. SANDIMMUNE [Suspect]
     Indication: HEART TRANSPLANT
     Dosage: 250 MG DAILY
     Route: 048
  2. DRUG THERAPY NOS [Concomitant]

REACTIONS (7)
  - BLOOD ALBUMIN DECREASED [None]
  - CACHEXIA [None]
  - DIALYSIS [None]
  - IMMUNOSUPPRESSANT DRUG LEVEL DECREASED [None]
  - RED BLOOD CELL COUNT DECREASED [None]
  - RENAL IMPAIRMENT [None]
  - WHITE BLOOD CELL COUNT DECREASED [None]
